FAERS Safety Report 4542351-6 (Version None)
Quarter: 2004Q4

REPORT INFORMATION
  Report Type: 
  Country: None (occurrence: None)
  Receive Date: 20041227
  Receipt Date: 20041209
  Transmission Date: 20050328
  Serious: Yes (Other)
  Sender: FDA-Public Use
  Company Number: 207409

PATIENT
  Age: 67 Year
  Sex: Female

DRUGS (2)
  1. AVONEX [Suspect]
     Indication: MULTIPLE SCLEROSIS
     Dosage: 30 UG; QW; IM
     Route: 030
     Dates: start: 19991001
  2. AVONEX [Suspect]
     Indication: MULTIPLE SCLEROSIS
     Dosage: 30 UQ; QW; IM
     Route: 030

REACTIONS (6)
  - AMNESIA [None]
  - BALANCE DISORDER [None]
  - DIFFICULTY IN WALKING [None]
  - FEAR [None]
  - HYDROCEPHALUS [None]
  - MOBILITY DECREASED [None]
